FAERS Safety Report 23185736 (Version 1)
Quarter: 2023Q4

REPORT INFORMATION
  Report Type: Spontaneous
  Country: CN (occurrence: CN)
  Receive Date: 20231115
  Receipt Date: 20231115
  Transmission Date: 20240109
  Serious: Yes (Disabling, Other)
  Sender: FDA-Public Use
  Company Number: None

PATIENT
  Age: 40 Year
  Sex: Male
  Weight: 80 kg

DRUGS (10)
  1. MANNITOL [Suspect]
     Active Substance: MANNITOL
     Indication: Reduction of increased intracranial pressure
     Dosage: 100 ML Q12H (DOSAGE FORM: INJECTION)
     Route: 041
     Dates: start: 20230927, end: 20230927
  2. MANNITOL [Suspect]
     Active Substance: MANNITOL
     Indication: Dehydration
     Dosage: 100 ML Q6H (DOSAGE FORM: INJECTION)
     Route: 041
     Dates: start: 20230928, end: 20230930
  3. MANNITOL [Suspect]
     Active Substance: MANNITOL
     Indication: Cerebral infarction
  4. MANNITOL [Suspect]
     Active Substance: MANNITOL
     Indication: Basilar artery occlusion
  5. ESOMEPRAZOLE SODIUM [Suspect]
     Active Substance: ESOMEPRAZOLE SODIUM
     Indication: Prophylaxis
     Dosage: 40 MG QD
     Route: 041
     Dates: start: 20230926
  6. PIPERACILLIN SODIUM\TAZOBACTAM SODIUM [Suspect]
     Active Substance: PIPERACILLIN SODIUM\TAZOBACTAM SODIUM
     Indication: Anti-infective therapy
     Dosage: 4.5 G Q8H  IVGTT
     Route: 041
     Dates: start: 20230926
  7. ASPIRIN [Suspect]
     Active Substance: ASPIRIN
     Indication: Cerebrovascular disorder
     Dosage: 100 MG QD, ENTERIC-COATED TABLET
     Route: 048
     Dates: start: 20230926
  8. LIPITOR [Suspect]
     Active Substance: ATORVASTATIN CALCIUM
     Indication: Cerebrovascular disorder
     Dosage: 20 MG, QN
     Route: 048
     Dates: start: 20230926
  9. HERBALS [Suspect]
     Active Substance: HERBALS
     Indication: Cerebrovascular disorder
     Dosage: 20 ML QD (IVGTT)
     Route: 041
     Dates: start: 20230926
  10. BUTYLPHTHALIDE [Suspect]
     Active Substance: BUTYLPHTHALIDE
     Indication: Cerebrovascular disorder
     Dosage: 100  ML  (IVGTT)
     Route: 041
     Dates: start: 20230926

REACTIONS (2)
  - Renal impairment [Not Recovered/Not Resolved]
  - Blood creatinine increased [Unknown]

NARRATIVE: CASE EVENT DATE: 20230930
